FAERS Safety Report 21565281 (Version 1)
Quarter: 2022Q4

REPORT INFORMATION
  Report Type: Spontaneous
  Country: US (occurrence: US)
  Receive Date: 20221108
  Receipt Date: 20221108
  Transmission Date: 20230113
  Serious: No
  Sender: FDA-Public Use
  Company Number: US-OYSTER POINT PHARMA, INC.-2022OYS00749

PATIENT
  Age: 70 Year
  Sex: Female
  Weight: 68.027 kg

DRUGS (2)
  1. TYRVAYA [Suspect]
     Active Substance: VARENICLINE TARTRATE
     Indication: Dry eye
     Dosage: 1 SPRAY IN EACH NOSTRIL, 2X/DAY (EVERY 12 HOURS)
     Route: 045
     Dates: start: 20220716, end: 20220725
  2. CHANTIX [Suspect]
     Active Substance: VARENICLINE TARTRATE
     Indication: Product used for unknown indication
     Dosage: UNK

REACTIONS (9)
  - Rhinorrhoea [Unknown]
  - Nasal pruritus [Unknown]
  - Throat tightness [Recovered/Resolved]
  - Nausea [Unknown]
  - Drug ineffective [Recovered/Resolved]
  - Wrong technique in product usage process [Recovered/Resolved]
  - Throat irritation [Unknown]
  - Sneezing [Unknown]
  - Nasal discomfort [Unknown]

NARRATIVE: CASE EVENT DATE: 20220715
